FAERS Safety Report 24145841 (Version 2)
Quarter: 2024Q3

REPORT INFORMATION
  Report Type: Spontaneous
  Country: US (occurrence: US)
  Receive Date: 20240729
  Receipt Date: 20240807
  Transmission Date: 20241016
  Serious: Yes (Hospitalization)
  Sender: CATALYST PHARMA
  Company Number: US-CATALYST PHARMACEUTICALS, INC-US-CATA-24-00758

PATIENT
  Age: 86 Year
  Sex: Female
  Weight: 74.385 kg

DRUGS (39)
  1. FIRDAPSE [Suspect]
     Active Substance: AMIFAMPRIDINE PHOSPHATE
     Indication: Myasthenic syndrome
     Dosage: 10MG 4X A DAY
     Route: 048
     Dates: start: 20210430, end: 2021
  2. FIRDAPSE [Suspect]
     Active Substance: AMIFAMPRIDINE PHOSPHATE
     Dosage: 20MG 4X A DAY
     Route: 048
     Dates: start: 20210818
  3. NITROSTAT [Concomitant]
     Active Substance: NITROGLYCERIN
     Indication: Product used for unknown indication
     Dosage: 0.4MG AS NEEDED
     Route: 065
  4. FOLIC ACID [Concomitant]
     Active Substance: FOLIC ACID
     Indication: Product used for unknown indication
     Dosage: 1MG DAILY
     Route: 065
  5. VITAMIN D3 [Concomitant]
     Active Substance: CHOLECALCIFEROL
     Indication: Product used for unknown indication
     Dosage: 50,000UG DAILY
     Route: 065
  6. LEVOTHYROXINE [Concomitant]
     Active Substance: LEVOTHYROXINE\LEVOTHYROXINE SODIUM
     Indication: Product used for unknown indication
     Dosage: 100UG DAILY
     Route: 065
  7. ADULT MULTIVITAMIN [Concomitant]
     Indication: Product used for unknown indication
     Dosage: 1 TABLET DAILY
     Route: 065
  8. PROTONIX [Concomitant]
     Active Substance: PANTOPRAZOLE SODIUM
     Indication: Product used for unknown indication
     Dosage: 20MG DAILY
     Route: 065
  9. POTASSIUM ER [Concomitant]
     Indication: Product used for unknown indication
     Dosage: 20 MEQ 3X DAILY
     Route: 065
  10. ALENDRONATE [Concomitant]
     Active Substance: ALENDRONATE SODIUM
     Indication: Product used for unknown indication
     Dosage: 70MG EVERY WEEK
     Route: 065
  11. ASPIRIN [Concomitant]
     Active Substance: ASPIRIN
     Indication: Product used for unknown indication
     Dosage: 81 MG AT BEDTIME
     Route: 065
  12. REFRESH CLASSIC [Concomitant]
     Active Substance: POLYVINYL ALCOHOL\POVIDONE
     Indication: Product used for unknown indication
     Dosage: 1 DROP 4X DAILY
     Route: 065
  13. VITAMIN B12 [Concomitant]
     Active Substance: CYANOCOBALAMIN
     Indication: Product used for unknown indication
     Dosage: 1000UG DAILY
     Route: 065
  14. GABAPENTIN [Concomitant]
     Active Substance: GABAPENTIN
     Indication: Product used for unknown indication
     Dosage: 300MG AT BED TIME
     Route: 065
  15. NORCO [Concomitant]
     Active Substance: ACETAMINOPHEN\HYDROCODONE BITARTRATE
     Indication: Product used for unknown indication
     Dosage: 10-325 AS NEEDED
     Route: 065
  16. TYLENOL [Concomitant]
     Active Substance: ACETAMINOPHEN
     Indication: Product used for unknown indication
     Dosage: 50MG AS NEEDED
     Route: 065
  17. FOSAMAX [Concomitant]
     Active Substance: ALENDRONATE SODIUM
     Indication: Product used for unknown indication
     Dosage: 70MG WEEKLY
     Route: 065
  18. VITAMIN B COMPLEX [Concomitant]
     Active Substance: CYANOCOBALAMIN\DEXPANTHENOL\NIACINAMIDE\PYRIDOXINE HYDROCHLORIDE\RIBOFLAVIN 5^-PHOSPHATE SODIUM\THIA
     Indication: Product used for unknown indication
     Dosage: 1 TABLET DAILY
     Route: 065
  19. BIOFREEZE [Concomitant]
     Active Substance: MENTHOL
     Indication: Product used for unknown indication
     Dosage: APPLY 4X DAILY
     Route: 065
  20. SUSTAIN [Concomitant]
     Indication: Product used for unknown indication
     Dosage: 1 DROP 4X DAILY
     Route: 065
  21. VOLTAREN [Concomitant]
     Active Substance: DICLOFENAC SODIUM
     Indication: Product used for unknown indication
     Dosage: APPLY AS NEEDED
     Route: 065
  22. FUROSEMIDE [Concomitant]
     Active Substance: FUROSEMIDE
     Indication: Product used for unknown indication
     Dosage: 60MG 2X DAILY
     Route: 065
  23. SACCHAROMYCES CEREVISIAE [Concomitant]
     Active Substance: SACCHAROMYCES CEREVISIAE
     Indication: Product used for unknown indication
     Dosage: 250MG DAILY
     Route: 065
  24. TUMS [Concomitant]
     Active Substance: CALCIUM CARBONATE
     Indication: Product used for unknown indication
     Dosage: 500MG AS NEEDED
     Route: 065
  25. PREDNISONE [Concomitant]
     Active Substance: PREDNISONE
     Indication: Product used for unknown indication
     Dosage: 5MG DAILY
     Route: 065
  26. LIDOCAINE VISCOUS [Concomitant]
     Active Substance: LIDOCAINE HYDROCHLORIDE
     Indication: Product used for unknown indication
     Dosage: 5ML AS NEEDED
     Route: 065
  27. STIOLTO RESPIMAT [Concomitant]
     Active Substance: OLODATEROL HYDROCHLORIDE\TIOTROPIUM BROMIDE MONOHYDRATE
     Indication: Product used for unknown indication
     Dosage: 2.5UG DAILY
     Route: 065
  28. OXYGEN [Concomitant]
     Active Substance: OXYGEN
     Indication: Product used for unknown indication
     Dosage: AS NEEDED
     Route: 065
  29. TRELEGY ELLIPTA [Concomitant]
     Active Substance: FLUTICASONE FUROATE\UMECLIDINIUM BROMIDE\VILANTEROL TRIFENATATE
     Indication: Product used for unknown indication
     Dosage: 100 DAILY
     Route: 065
  30. FISH OIL [Concomitant]
     Active Substance: FISH OIL
     Indication: Product used for unknown indication
     Dosage: 1200MG DAILY
     Route: 065
  31. ALBUTEROL [Concomitant]
     Active Substance: ALBUTEROL
     Indication: Product used for unknown indication
     Dosage: 2 PUFFS AS NEEDED
     Route: 055
  32. EPIPEN [Concomitant]
     Active Substance: EPINEPHRINE
     Indication: Product used for unknown indication
     Dosage: 0.3MG AS NEEDED
     Route: 065
  33. FLONASE [Concomitant]
     Active Substance: FLUTICASONE PROPIONATE
     Indication: Product used for unknown indication
     Dosage: 2 SPRAYS DAILY
     Route: 065
  34. ZOFRAN [Concomitant]
     Active Substance: ONDANSETRON HYDROCHLORIDE
     Indication: Product used for unknown indication
     Dosage: 4MG AS NEEDED
     Route: 065
  35. PROLIA [Concomitant]
     Active Substance: DENOSUMAB
     Indication: Product used for unknown indication
     Dosage: PENS 60MG EVERY 6 MONTHS
     Route: 065
  36. FIBER THERAPY (CALCIUM POLYCARBOPHIL) [Concomitant]
     Active Substance: CALCIUM POLYCARBOPHIL
     Indication: Product used for unknown indication
     Dosage: 0.52G AS NEEDED
     Route: 065
  37. SENNA DOCUSATE [Concomitant]
     Indication: Product used for unknown indication
     Dosage: AS NEEDED
     Route: 065
  38. VALACYCLOVIR [Concomitant]
     Active Substance: VALACYCLOVIR HYDROCHLORIDE
     Indication: Product used for unknown indication
     Dosage: 500MG 2X DAILY
     Route: 065
  39. GAMMAGARD [Concomitant]
     Active Substance: HUMAN IMMUNOGLOBULIN G
     Indication: Product used for unknown indication
     Dosage: 5G EVERY OTHER WEEK
     Route: 065

REACTIONS (3)
  - Diverticulitis intestinal perforated [Recovered/Resolved]
  - Peritonitis [Recovered/Resolved]
  - Product dose omission issue [Unknown]

NARRATIVE: CASE EVENT DATE: 20240601
